FAERS Safety Report 9851047 (Version 1)
Quarter: 2014Q1

REPORT INFORMATION
  Report Type: Spontaneous
  Country: US (occurrence: US)
  Receive Date: 20140128
  Receipt Date: 20140128
  Transmission Date: 20141002
  Serious: No
  Sender: FDA-Public Use
  Company Number: US-DYAX CORP.-2013DX000178

PATIENT
  Age: 37 Year
  Sex: Female
  Weight: 74.91 kg

DRUGS (3)
  1. KALBITOR [Suspect]
     Indication: HEREDITARY ANGIOEDEMA
     Route: 058
     Dates: start: 201301, end: 201301
  2. KALBITOR [Suspect]
     Route: 058
     Dates: start: 2011
  3. DANAZOL [Concomitant]
     Indication: HEREDITARY ANGIOEDEMA
     Route: 048
     Dates: start: 2003

REACTIONS (1)
  - Rotator cuff repair [Recovered/Resolved]
